FAERS Safety Report 18631501 (Version 1)
Quarter: 2020Q4

REPORT INFORMATION
  Report Type: Spontaneous
  Country: US (occurrence: US)
  Receive Date: 20201217
  Receipt Date: 20201217
  Transmission Date: 20210114
  Serious: Yes (Hospitalization)
  Sender: FDA-Public Use
  Company Number: US-BAUSCH-BL-2020-036965

PATIENT
  Age: 55 Year
  Sex: Female

DRUGS (7)
  1. BUMETANIDE. [Concomitant]
     Active Substance: BUMETANIDE
     Route: 042
  2. BUMETANIDE. [Concomitant]
     Active Substance: BUMETANIDE
     Indication: ESSENTIAL HYPERTENSION
     Route: 042
  3. ATORVASTATIN [Concomitant]
     Active Substance: ATORVASTATIN
     Indication: PRODUCT USED FOR UNKNOWN INDICATION
  4. HYDRALAZINE [Concomitant]
     Active Substance: HYDRALAZINE HYDROCHLORIDE
     Indication: ESSENTIAL HYPERTENSION
  5. METOLAZONE. [Concomitant]
     Active Substance: METOLAZONE
     Indication: ESSENTIAL HYPERTENSION
     Dosage: ONCE BEFORE THE MORNING DOSE OF BUMETANIDE
  6. DILTIAZEM. [Suspect]
     Active Substance: DILTIAZEM
     Indication: ESSENTIAL HYPERTENSION
     Route: 065
  7. INSULIN GLARGINE [Concomitant]
     Active Substance: INSULIN GLARGINE
     Indication: PRODUCT USED FOR UNKNOWN INDICATION
     Dosage: AT NIGHT
     Route: 058

REACTIONS (1)
  - BRASH syndrome [Recovered/Resolved]
